FAERS Safety Report 7959351-6 (Version None)
Quarter: 2011Q4

REPORT INFORMATION
  Report Type: 
  Country: None (occurrence: None)
  Receive Date: 20111206
  Receipt Date: 20111201
  Transmission Date: 20120403
  Serious: Yes (Life-Threatening, Hospitalization)
  Sender: FDA-Public Use
  Company Number: SE-PFIZER INC-2011169049

PATIENT
  Age: 49 Year
  Sex: Female
  Weight: 158 kg

DRUGS (3)
  1. SULFASALAZINE [Suspect]
  2. BRICANYL [Concomitant]
     Dosage: 0.5 MG, AS NEEDED
  3. SULFASALAZINE [Suspect]
     Indication: PSORIATIC ARTHROPATHY
     Dosage: 1000 MG, 2X/DAY
     Dates: start: 20110201, end: 20110627

REACTIONS (4)
  - ALVEOLITIS [None]
  - HEADACHE [None]
  - FATIGUE [None]
  - LUNG INFILTRATION [None]
